FAERS Safety Report 9868928 (Version 1)
Quarter: 2014Q1

REPORT INFORMATION
  Report Type: Spontaneous
  Country: IN (occurrence: IN)
  Receive Date: 20140204
  Receipt Date: 20140204
  Transmission Date: 20141002
  Serious: Yes (Death)
  Sender: FDA-Public Use
  Company Number: IN-MERCK-1402IND000247

PATIENT
  Age: 63 Year
  Sex: 0

DRUGS (2)
  1. VIRAFERONPEG [Suspect]
     Dosage: 50 MICROGRAM, UNK
  2. REBETOL [Suspect]
     Route: 048

REACTIONS (2)
  - Asthenia [Fatal]
  - Dialysis [Unknown]
